FAERS Safety Report 5788153-4 (Version None)
Quarter: 2008Q2

REPORT INFORMATION
  Report Type: 
  Country: None (occurrence: None)
  Receive Date: 20080625
  Receipt Date: 20080602
  Transmission Date: 20081010
  Serious: No
  Sender: FDA-Public Use
  Company Number: US-BOEHRINGER INGELHEIM GMBH, GERMANY-2008-BP-08688BP

PATIENT
  Age: 49 Year
  Sex: Male

DRUGS (1)
  1. FLOMAX [Suspect]
     Indication: URINARY TRACT DISORDER
     Dates: end: 20080101

REACTIONS (2)
  - BLOOD PRESSURE INCREASED [None]
  - HEADACHE [None]
